FAERS Safety Report 20663420 (Version 3)
Quarter: 2022Q4

REPORT INFORMATION
  Report Type: Spontaneous
  Country: JP (occurrence: JP)
  Receive Date: 20220401
  Receipt Date: 20221006
  Transmission Date: 20230112
  Serious: Yes (Life-Threatening, Hospitalization, Disabling, Other)
  Sender: FDA-Public Use
  Company Number: JP-GLAXOSMITHKLINE-JP2022JPN050533

PATIENT

DRUGS (9)
  1. BENLYSTA [Suspect]
     Active Substance: BELIMUMAB
     Indication: Systemic lupus erythematosus
     Dosage: 340 MG, QD
     Route: 041
     Dates: start: 20220117, end: 20220314
  2. PLAQUENIL TABLETS (HYDROXYCHLOROQUINE SULFATE) [Concomitant]
     Indication: Systemic lupus erythematosus
     Dosage: 200 MG, QD, AFTER BREAKFAST
     Route: 048
     Dates: start: 20210823
  3. BONALON TABLET [Concomitant]
     Dosage: 35 MG, WE, EVERY SATURDAY ON AWAKENING
     Route: 048
  4. ONEALFA TABLETS [Concomitant]
     Dosage: 0.25 ?G, QD, AFTER BREAKFAST
  5. MAGNESIUM OXIDE [Concomitant]
     Active Substance: MAGNESIUM OXIDE
     Dosage: 330 MG, BID, AFTER BREAKFAST AND DINNER
  6. AMITIZA CAPSULE [Concomitant]
     Dosage: 24 ?G, BID, AFTER BREAKFAST AND DINNER
  7. MUCOSTA TABLETS [Concomitant]
     Dosage: 100 MG, BID, AFTER BREAKFAST AND DINNER
  8. PREDNISOLONE [Concomitant]
     Active Substance: PREDNISOLONE
     Indication: Systemic lupus erythematosus
     Dosage: 8 MG, QD, AFTER BREAKFAST
     Route: 048
     Dates: start: 20210624
  9. MYCOPHENOLATE MOFETIL [Concomitant]
     Active Substance: MYCOPHENOLATE MOFETIL
     Dosage: UNK
     Dates: start: 2021, end: 2021

REACTIONS (13)
  - Suicide attempt [Not Recovered/Not Resolved]
  - Fall [Not Recovered/Not Resolved]
  - Rib fracture [Recovered/Resolved with Sequelae]
  - Pelvic fracture [Recovered/Resolved with Sequelae]
  - Cervical vertebral fracture [Recovered/Resolved with Sequelae]
  - Upper limb fracture [Recovering/Resolving]
  - Traumatic haemothorax [Recovering/Resolving]
  - Suicidal ideation [Not Recovered/Not Resolved]
  - Anxiety [Not Recovered/Not Resolved]
  - Physical deconditioning [Not Recovered/Not Resolved]
  - Condition aggravated [Not Recovered/Not Resolved]
  - Discouragement [Not Recovered/Not Resolved]
  - Malaise [Unknown]

NARRATIVE: CASE EVENT DATE: 20220131
